FAERS Safety Report 7135818-8 (Version None)
Quarter: 2010Q4

REPORT INFORMATION
  Report Type: 
  Country: None (occurrence: None)
  Receive Date: 20101203
  Receipt Date: 20101125
  Transmission Date: 20110411
  Serious: Yes (Hospitalization)
  Sender: FDA-Public Use
  Company Number: JP-AMGEN-KDC438006

PATIENT

DRUGS (21)
  1. PANITUMUMAB [Suspect]
     Dosage: 480 MG, Q2WK
     Route: 041
     Dates: start: 20100817, end: 20100831
  2. FLUOROURACIL [Suspect]
     Indication: COLORECTAL CANCER
     Dosage: UNK UNK, UNK
     Route: 040
     Dates: start: 20100817
  3. FLUOROURACIL [Suspect]
     Dosage: UNK UNK, UNK
     Route: 041
     Dates: start: 20100817
  4. FLUOROURACIL [Suspect]
     Route: 040
     Dates: start: 20100817
  5. FLUOROURACIL [Suspect]
     Route: 041
     Dates: start: 20100817
  6. OXALIPLATIN [Suspect]
     Indication: COLORECTAL CANCER
     Route: 041
     Dates: start: 20100817
  7. CALCIUM LEVOFOLINATE [Concomitant]
     Dosage: UNK UNK, UNK
     Route: 041
     Dates: start: 20100817
  8. CALCIUM LEVOFOLINATE [Concomitant]
     Route: 041
     Dates: start: 20100817
  9. CORTICOSTEROIDS [Concomitant]
     Indication: PROPHYLAXIS
     Route: 065
  10. ALOXI [Concomitant]
     Route: 042
  11. DECADRON [Concomitant]
     Route: 048
  12. DECADRON [Concomitant]
     Route: 042
  13. PRIMPERAN [Concomitant]
     Route: 048
  14. EMEND [Concomitant]
     Route: 048
  15. CONIEL [Concomitant]
     Route: 048
  16. LONGES [Concomitant]
     Route: 048
  17. LIPITOR [Concomitant]
     Route: 048
  18. GASTER D [Concomitant]
     Route: 048
  19. BIO THREE [Concomitant]
     Route: 048
  20. MUCOSTA [Concomitant]
     Route: 048
  21. PURSENNID [Concomitant]
     Route: 048

REACTIONS (4)
  - DERMATITIS ACNEIFORM [None]
  - NEUTROPHIL COUNT DECREASED [None]
  - PARONYCHIA [None]
  - STOMATITIS [None]
